FAERS Safety Report 22530282 (Version 1)
Quarter: 2023Q2

REPORT INFORMATION
  Report Type: Spontaneous
  Country: CN (occurrence: CN)
  Receive Date: 20230607
  Receipt Date: 20230607
  Transmission Date: 20230721
  Serious: Yes (Other)
  Sender: FDA-Public Use
  Company Number: CN-ANIPHARMA-2023-CN-000322

PATIENT
  Age: 50 Year
  Sex: Male

DRUGS (3)
  1. FLUVOXAMINE [Suspect]
     Active Substance: FLUVOXAMINE
     Indication: Mental disorder
     Dosage: 200 MG DAILY
  2. OLANZAPINE [Suspect]
     Active Substance: OLANZAPINE
     Indication: Mental disorder
     Dosage: 20 MG DAILY
  3. BUSPIRONE [Suspect]
     Active Substance: BUSPIRONE HYDROCHLORIDE
     Indication: Mental disorder
     Dosage: 30 MG DAILY

REACTIONS (1)
  - Drug interaction [Recovered/Resolved]
